FAERS Safety Report 14785106 (Version 1)
Quarter: 2018Q2

REPORT INFORMATION
  Report Type: Spontaneous
  Country: DE (occurrence: DE)
  Receive Date: 20180420
  Receipt Date: 20180420
  Transmission Date: 20180711
  Serious: Yes (Other)
  Sender: FDA-Public Use
  Company Number: DE-PFIZER INC-2018155949

PATIENT
  Age: 75 Year
  Sex: Female
  Weight: 72.7 kg

DRUGS (21)
  1. PACLITAXEL. [Suspect]
     Active Substance: PACLITAXEL
     Indication: OVARIAN CANCER
     Dosage: 317 MG, EVERY 3 WEEKS
     Route: 042
     Dates: start: 20160120
  2. PACLITAXEL. [Suspect]
     Active Substance: PACLITAXEL
     Dosage: 317 MG, EVERY 3 WEEKS, DAILY DOSE: 317 MG MILLGRAM(S) EVERY 3 WEEKS
     Route: 042
     Dates: start: 20160323
  3. CARBOPLATIN. [Suspect]
     Active Substance: CARBOPLATIN
     Dosage: DAILY DOSE: 425 MG MILLGRAM(S) EVERY 3 WEEKS
     Route: 042
     Dates: start: 20160210
  4. DAFIRO [Concomitant]
     Active Substance: AMLODIPINE\VALSARTAN
     Indication: HYPERTENSION
     Dosage: UNK
     Route: 048
     Dates: start: 2015, end: 20160322
  5. TORASEMIDE [Concomitant]
     Active Substance: TORSEMIDE
     Indication: HYPERTENSION
     Dosage: 10 MG, UNK
     Route: 048
     Dates: start: 20160121
  6. PACLITAXEL. [Suspect]
     Active Substance: PACLITAXEL
     Dosage: 317 MG, EVERY 3 WEEKS (DAILY DOSE: 317 MG MILLGRAM(S) EVERY 3 WEEKS)
     Route: 042
     Dates: start: 20160210
  7. CARBOPLATIN. [Suspect]
     Active Substance: CARBOPLATIN
     Indication: OVARIAN CANCER
     Dosage: 425 MG, EVERY 3 WEEKS
     Route: 042
     Dates: start: 20160120
  8. DAFIRO [Concomitant]
     Active Substance: AMLODIPINE\VALSARTAN
     Dosage: DAILY DOSE: 7.5 MG MILLGRAM(S) EVERY DAYS
     Route: 048
     Dates: start: 20160323
  9. CARBOPLATIN. [Suspect]
     Active Substance: CARBOPLATIN
     Dosage: DAILY DOSE: 425 MG MILLGRAM(S) EVERY 3 WEEKS
     Route: 042
     Dates: start: 20160302
  10. CARBOPLATIN. [Suspect]
     Active Substance: CARBOPLATIN
     Dosage: DAILY DOSE: 425 MG MILLGRAM(S) EVERY 3 WEEKS
     Route: 042
     Dates: start: 20160323
  11. DEKRISTOL [Concomitant]
     Active Substance: CHOLECALCIFEROL
     Indication: OSTEOPOROSIS
     Dosage: DAILY DOSE: 40000 IU INTERNATIONAL UNIT(S) EVERY WEEKS
     Route: 048
     Dates: start: 20160203
  12. L-THYROXIN [Concomitant]
     Active Substance: LEVOTHYROXINE SODIUM
     Dosage: 1 DF, DAILY
     Route: 048
     Dates: start: 2013
  13. CALCIGEN [Concomitant]
     Indication: OSTEOPOROSIS
     Dosage: DAILY DOSE: 1200 MG MILLGRAM(S) EVERY DAYS
     Route: 048
     Dates: start: 20160203
  14. AVASTIN [Suspect]
     Active Substance: BEVACIZUMAB
     Dosage: 1080 MG, EVERY 3 WEEKS, THERAPY INTERRUPTED DUE TO WORSENING OF HYPERTENSION
     Route: 042
     Dates: start: 20160303
  15. OMEPRAZOL [Concomitant]
     Active Substance: OMEPRAZOLE
     Indication: DIVERTICULUM
     Dosage: 1 DF, DAILY
     Route: 048
     Dates: start: 201510
  16. CARBOPLATIN. [Suspect]
     Active Substance: CARBOPLATIN
     Dosage: DAILY DOSE: 425 MG MILLGRAM(S) EVERY 3 WEEKS
     Route: 042
     Dates: start: 20160413
  17. AVASTIN [Suspect]
     Active Substance: BEVACIZUMAB
     Indication: OVARIAN CANCER
     Dosage: 1080 MG, EVERY 3 WEEKS, MOST RECENT DOSE PRIOR TO ANEMIA: 03/MAR/2016
     Route: 042
     Dates: start: 20160211
  18. AVASTIN [Suspect]
     Active Substance: BEVACIZUMAB
     Dosage: 1080 MG, EVERY 3 WEEKS, THERAPY RESTARTED
     Route: 042
  19. NOVAMINSULFON [Concomitant]
     Active Substance: METAMIZOLE
     Indication: PAIN
     Dosage: DAILY DOSE: 1500 MG MILLGRAM(S) EVERY DAYS
     Route: 048
     Dates: start: 2015
  20. PACLITAXEL. [Suspect]
     Active Substance: PACLITAXEL
     Dosage: 317 MG, EVERY 3 WEEKS, DAILY DOSE: 317 MG MILLGRAM(S) EVERY 3 WEEKS
     Route: 042
     Dates: start: 20160302
  21. SIMVASTATIN. [Concomitant]
     Active Substance: SIMVASTATIN
     Indication: HYPERCHOLESTEROLAEMIA
     Route: 048
     Dates: start: 2015

REACTIONS (8)
  - Sensory disturbance [Recovered/Resolved]
  - Constipation [Recovered/Resolved]
  - Hypertension [Recovered/Resolved]
  - Abdominal pain [Recovered/Resolved]
  - Anaemia [Recovered/Resolved]
  - Protein urine present [Not Recovered/Not Resolved]
  - Skin disorder [Recovered/Resolved]
  - Dysgeusia [Recovered/Resolved]

NARRATIVE: CASE EVENT DATE: 20160210
